FAERS Safety Report 7735048-2 (Version None)
Quarter: 2011Q3

REPORT INFORMATION
  Report Type: 
  Country: None (occurrence: None)
  Receive Date: 20110907
  Receipt Date: 20110822
  Transmission Date: 20111222
  Serious: Yes (Hospitalization, Other)
  Sender: FDA-Public Use
  Company Number: US-ASTRAZENECA-2011SE44569

PATIENT
  Age: 83 Year
  Sex: Female
  Weight: 72.6 kg

DRUGS (6)
  1. SEROQUEL [Suspect]
     Indication: DEPRESSION
     Route: 048
  2. SEROQUEL [Suspect]
     Indication: SLEEP DISORDER
     Route: 048
  3. EYE DROPS [Concomitant]
  4. SEROQUEL [Suspect]
     Indication: BIPOLAR DISORDER
     Route: 048
  5. ARIMIDEX [Concomitant]
     Route: 048
     Dates: start: 20050101
  6. LYRICA [Concomitant]
     Indication: ARTHRALGIA
     Dates: start: 20110101

REACTIONS (8)
  - BREAST CANCER [None]
  - RASH [None]
  - INSOMNIA [None]
  - PRURITUS [None]
  - HYPOAESTHESIA [None]
  - OFF LABEL USE [None]
  - ARTHRALGIA [None]
  - DRUG DOSE OMISSION [None]
